FAERS Safety Report 22526797 (Version 1)
Quarter: 2023Q2

REPORT INFORMATION
  Report Type: Spontaneous
  Country: US (occurrence: US)
  Receive Date: 20230606
  Receipt Date: 20230606
  Transmission Date: 20230722
  Serious: Yes (Other)
  Sender: FDA-Public Use
  Company Number: US-BAYER-2023A077945

PATIENT
  Age: 35 Year
  Sex: Female

DRUGS (1)
  1. KYLEENA [Suspect]
     Active Substance: LEVONORGESTREL
     Indication: Contraception
     Dosage: 17.5?G/DAY
     Route: 015
     Dates: start: 20200801, end: 20220513

REACTIONS (5)
  - Pregnancy with contraceptive device [Recovered/Resolved with Sequelae]
  - Abortion spontaneous [None]
  - Genital haemorrhage [Recovered/Resolved with Sequelae]
  - Drug ineffective [None]
  - Pelvic pain [None]

NARRATIVE: CASE EVENT DATE: 20220201
